FAERS Safety Report 20175253 (Version 1)
Quarter: 2021Q4

REPORT INFORMATION
  Report Type: Spontaneous
  Country: FR (occurrence: FR)
  Receive Date: 20211213
  Receipt Date: 20211213
  Transmission Date: 20220303
  Serious: Yes (Other)
  Sender: FDA-Public Use
  Company Number: None

PATIENT
  Age: 73 Year
  Sex: Female
  Weight: 85 kg

DRUGS (8)
  1. CLOPIDOGREL [Suspect]
     Active Substance: CLOPIDOGREL BISULFATE
     Indication: Angioplasty
     Dosage: 75 MG IN THE MORNING
     Route: 048
     Dates: start: 202106
  2. ASPIRIN [Suspect]
     Active Substance: ASPIRIN
     Indication: Angioplasty
     Dosage: 75 MG IN THE MORNING
     Route: 048
     Dates: start: 202106
  3. LOVENOX [Suspect]
     Active Substance: ENOXAPARIN SODIUM
     Indication: Angioplasty
     Dosage: 1 INJECTION MORNING AND EVENING
     Route: 058
     Dates: start: 20210702, end: 20210803
  4. ATORVASTATIN [Concomitant]
     Active Substance: ATORVASTATIN
     Dosage: 40 MG, FILM-COATED TABLETS, 1 CP IN THE EVENING
     Route: 042
  5. DOLIPRANE [Concomitant]
     Active Substance: ACETAMINOPHEN
     Dosage: 1000 MG, TABLET, 3 CP / DAY
     Route: 048
  6. ISOPTIN [Concomitant]
     Active Substance: VERAPAMIL HYDROCHLORIDE
     Dosage: 120 MG, CAPSULE, 1 CP IN THE MORNING
     Route: 048
  7. NITROUS OXIDE [Concomitant]
     Active Substance: NITROUS OXIDE
     Dosage: GAS FOR INHALATION, BOTTLED, AT THE TIME OF TREATMENT
     Route: 048
  8. RAMIPRIL [Concomitant]
     Active Substance: RAMIPRIL
     Dosage: 1.25 MG, TABLETS, 1 CP IN THE MORNING
     Route: 048

REACTIONS (1)
  - Haemarthrosis [Recovering/Resolving]

NARRATIVE: CASE EVENT DATE: 20210727
